FAERS Safety Report 9870086 (Version 1)
Quarter: 2014Q1

REPORT INFORMATION
  Report Type: Spontaneous
  Country: US (occurrence: US)
  Receive Date: 20140205
  Receipt Date: 20140205
  Transmission Date: 20141002
  Serious: Yes (Hospitalization)
  Sender: FDA-Public Use
  Company Number: US-UCBSA-111033

PATIENT
  Sex: Female

DRUGS (4)
  1. VIMPAT [Suspect]
     Indication: EPILEPSY
     Route: 042
     Dates: start: 201401, end: 201401
  2. VIMPAT [Suspect]
     Indication: EPILEPSY
     Route: 042
     Dates: start: 201401, end: 201401
  3. KEPPRA [Suspect]
     Dosage: UNKNOWN DOSE
  4. DILANTIN [Concomitant]
     Dosage: UNKNOWN DOSE

REACTIONS (2)
  - Atrioventricular block complete [Recovered/Resolved]
  - Epilepsy [Recovered/Resolved]
